FAERS Safety Report 25821366 (Version 1)
Quarter: 2025Q3

REPORT INFORMATION
  Report Type: Report from Study
  Country: US (occurrence: US)
  Receive Date: 20250919
  Receipt Date: 20250919
  Transmission Date: 20251020
  Serious: No
  Sender: SUNOVION
  Company Number: US-SUMITOMO PHARMA SWITZERLAND GMBH-2025SPA011770

PATIENT
  Age: 80 Year
  Sex: Male

DRUGS (11)
  1. ORGOVYX [Suspect]
     Active Substance: RELUGOLIX
     Indication: Prostate cancer
     Route: 048
  2. ORGOVYX [Suspect]
     Active Substance: RELUGOLIX
     Route: 048
  3. CALCIUM [Concomitant]
     Active Substance: CALCIUM
  4. COENZYME Q10 [Concomitant]
     Active Substance: DIETARY SUPPLEMENT\UBIDECARENONE
  5. DIGOXIN [Concomitant]
     Active Substance: DIGOXIN
  6. ELIQUIS [Concomitant]
     Active Substance: APIXABAN
  7. FISH OIL [Concomitant]
     Active Substance: FISH OIL
  8. Vitamin k2 + d3 [Concomitant]
  9. NUBEQA [Concomitant]
     Active Substance: DAROLUTAMIDE
  10. REMERON [Concomitant]
     Active Substance: MIRTAZAPINE
  11. URSODIOL [Concomitant]
     Active Substance: URSODIOL

REACTIONS (3)
  - Neuropathy peripheral [Unknown]
  - Dysuria [Unknown]
  - Dyschezia [Unknown]
